FAERS Safety Report 5522892-5 (Version None)
Quarter: 2007Q4

REPORT INFORMATION
  Report Type: 
  Country: None (occurrence: None)
  Receive Date: 20071115
  Receipt Date: 20071105
  Transmission Date: 20080405
  Serious: Yes (Disabling)
  Sender: FDA-Public Use
  Company Number: 2007-159547-NL

PATIENT
  Age: 29 Year
  Sex: Male

DRUGS (3)
  1. PANCURONIUM BROMIDE [Suspect]
     Indication: MECHANICAL VENTILATION
  2. NITRIC OXIDE [Concomitant]
  3. GENTAMICIN [Concomitant]

REACTIONS (1)
  - DEAFNESS NEUROSENSORY [None]
